FAERS Safety Report 4778569-7 (Version None)
Quarter: 2005Q3

REPORT INFORMATION
  Report Type: 
  Country: None (occurrence: None)
  Receive Date: 20050926
  Receipt Date: 20050916
  Transmission Date: 20060218
  Serious: Yes (Hospitalization, Disabling)
  Sender: FDA-Public Use
  Company Number: US-MERCK-0509USA02626

PATIENT
  Age: 72 Year
  Sex: Female
  Weight: 58 kg

DRUGS (7)
  1. VIOXX [Suspect]
     Indication: ARTHRALGIA
     Route: 048
     Dates: start: 20020301, end: 20020301
  2. VIOXX [Suspect]
     Indication: INFLAMMATION
     Route: 048
     Dates: start: 20020301, end: 20020301
  3. TYLENOL (CAPLET) [Concomitant]
     Route: 048
  4. PREDNISONE [Concomitant]
     Route: 048
  5. VITAMINS (UNSPECIFIED) [Concomitant]
     Route: 048
  6. LORAZEPAM [Concomitant]
     Route: 048
  7. PREVACID [Concomitant]
     Route: 048

REACTIONS (1)
  - CEREBROVASCULAR ACCIDENT [None]
